FAERS Safety Report 6394870-8 (Version None)
Quarter: 2009Q4

REPORT INFORMATION
  Report Type: 
  Country: None (occurrence: None)
  Receive Date: 20091009
  Receipt Date: 20091002
  Transmission Date: 20100525
  Serious: Yes (Congenital Anomaly, Other)
  Sender: FDA-Public Use
  Company Number: GB-BRISTOL-MYERS SQUIBB COMPANY-14773030

PATIENT
  Age: 8 Month
  Weight: 2 kg

DRUGS (3)
  1. ABILIFY [Suspect]
     Dosage: DURATION 18 MONTHS TO 2 YEARS
     Route: 064
  2. DEXAMETHASONE 0.5MG TAB [Suspect]
     Route: 064
  3. DEXTROAMPHETAMINE SULFATE [Suspect]
     Route: 064

REACTIONS (4)
  - GROSS MOTOR DELAY [None]
  - HEAD DEFORMITY [None]
  - PLAGIOCEPHALY [None]
  - SMALL FOR DATES BABY [None]
